FAERS Safety Report 5495211-0 (Version None)
Quarter: 2007Q4

REPORT INFORMATION
  Report Type: 
  Country: None (occurrence: None)
  Receive Date: 20071024
  Receipt Date: 20071017
  Transmission Date: 20080405
  Serious: Yes (Other)
  Sender: FDA-Public Use
  Company Number: JP-PFIZER INC-2007018113

PATIENT
  Age: 48 Year
  Sex: Female

DRUGS (5)
  1. ATARAX [Suspect]
     Indication: ABDOMINAL PAIN
     Dosage: DAILY DOSE:25MG
     Route: 030
     Dates: start: 19870101, end: 20060901
  2. PENTAZOCINE LACTATE [Suspect]
     Route: 042
  3. ANALGESICS [Concomitant]
  4. BUPRENORPHINE HCL [Concomitant]
     Route: 042
  5. INSULIN [Concomitant]
     Route: 058

REACTIONS (1)
  - INJECTION SITE ULCER [None]
